APPROVED DRUG PRODUCT: FEMINONE
Active Ingredient: ETHINYL ESTRADIOL
Strength: 0.05MG
Dosage Form/Route: TABLET;ORAL
Application: N016649 | Product #001
Applicant: PHARMACIA AND UPJOHN CO
Approved: Approved Prior to Jan 1, 1982 | RLD: No | RS: No | Type: DISCN